FAERS Safety Report 7047787-X (Version None)
Quarter: 2010Q4

REPORT INFORMATION
  Report Type: 
  Country: None (occurrence: None)
  Receive Date: 20101015
  Receipt Date: 20101005
  Transmission Date: 20110411
  Serious: Yes (Other)
  Sender: FDA-Public Use
  Company Number: US-PFIZER INC-2010127035

PATIENT
  Sex: Female
  Weight: 81.633 kg

DRUGS (1)
  1. DETROL LA [Suspect]
     Indication: HYPERTONIC BLADDER
     Dosage: 4 MG, 1X/DAY
     Route: 048
     Dates: start: 20060101

REACTIONS (4)
  - ARTHRITIS [None]
  - DRUG INEFFECTIVE [None]
  - ENDOCRINE DISORDER [None]
  - GASTROOESOPHAGEAL REFLUX DISEASE [None]
